FAERS Safety Report 26188843 (Version 1)
Quarter: 2025Q4

REPORT INFORMATION
  Report Type: Spontaneous
  Country: US (occurrence: US)
  Receive Date: 20251222
  Receipt Date: 20251222
  Transmission Date: 20260117
  Serious: Yes (Other)
  Sender: BEIGENE
  Company Number: US-BEONEMEDICINES-BGN-2025-023061

PATIENT
  Sex: Female

DRUGS (4)
  1. BRUKINSA [Suspect]
     Active Substance: ZANUBRUTINIB
     Indication: Extranodal marginal zone B-cell lymphoma (MALT type)
     Dosage: 320 MILLIGRAM
     Route: 061
  2. BRUKINSA [Suspect]
     Active Substance: ZANUBRUTINIB
     Dosage: 80 MILLIGRAM, QID
     Route: 061
  3. BRUKINSA [Suspect]
     Active Substance: ZANUBRUTINIB
     Dosage: 80 MILLIGRAM, BID
     Route: 061
  4. BRUKINSA [Suspect]
     Active Substance: ZANUBRUTINIB
     Indication: Extranodal marginal zone B-cell lymphoma (MALT type)
     Dosage: UNK

REACTIONS (16)
  - Syncope [Recovered/Resolved]
  - Spinal operation [Unknown]
  - Contusion [Not Recovered/Not Resolved]
  - Haemorrhage [Unknown]
  - Arthralgia [Unknown]
  - Myalgia [Unknown]
  - Arthritis [Unknown]
  - Musculoskeletal pain [Not Recovered/Not Resolved]
  - Petechiae [Recovered/Resolved]
  - Nocturnal dyspnoea [Recovered/Resolved]
  - Dyspnoea [Recovered/Resolved]
  - Dizziness [Recovered/Resolved]
  - Memory impairment [Unknown]
  - Bone pain [Unknown]
  - Respiratory tract infection [Recovered/Resolved]
  - Off label use [Unknown]
